FAERS Safety Report 7106288-0 (Version None)
Quarter: 2010Q4

REPORT INFORMATION
  Report Type: 
  Country: None (occurrence: None)
  Receive Date: 20101116
  Receipt Date: 20101111
  Transmission Date: 20110411
  Serious: Yes (Hospitalization)
  Sender: FDA-Public Use
  Company Number: JP-PFIZER INC-2010146254

PATIENT
  Age: 82 Year
  Sex: Female

DRUGS (6)
  1. LYRICA [Suspect]
     Indication: POST HERPETIC NEURALGIA
     Dosage: 75 MG, 2X/DAY
     Route: 048
     Dates: start: 20100628, end: 20100715
  2. RENIVACE [Concomitant]
  3. TAKEPRON [Concomitant]
  4. CERCINE [Concomitant]
  5. PURSENNID [Concomitant]
  6. MAGNESIUM OXIDE [Concomitant]

REACTIONS (1)
  - DECREASED APPETITE [None]
